FAERS Safety Report 9541737 (Version 3)
Quarter: 2013Q4

REPORT INFORMATION
  Report Type: Spontaneous
  Country: US (occurrence: US)
  Receive Date: 20130923
  Receipt Date: 20131113
  Transmission Date: 20140711
  Serious: Yes (Other)
  Sender: FDA-Public Use
  Company Number: US-SANOFI-AVENTIS-2013SA092071

PATIENT
  Age: 66 Year
  Sex: Female
  Weight: 71 kg

DRUGS (21)
  1. LANTUS SOLOSTAR [Suspect]
     Indication: TYPE 2 DIABETES MELLITUS
     Dosage: DOSE:74 UNIT(S)
     Route: 058
     Dates: start: 2004
  2. LANTUS SOLOSTAR [Suspect]
     Indication: TYPE 2 DIABETES MELLITUS
     Dosage: DOSE:74 UNIT(S)
     Route: 058
     Dates: start: 2004
  3. LANTUS SOLOSTAR [Suspect]
     Indication: TYPE 2 DIABETES MELLITUS
     Dosage: DOSE:74 UNIT(S)
     Route: 058
     Dates: start: 2004
  4. SOLOSTAR [Suspect]
     Indication: TYPE 2 DIABETES MELLITUS
  5. SOLOSTAR [Suspect]
     Indication: TYPE 2 DIABETES MELLITUS
  6. SOLOSTAR [Suspect]
     Indication: TYPE 2 DIABETES MELLITUS
  7. FERROUS FUMARATE/IRON [Concomitant]
     Route: 065
  8. POTASSIUM CHLORIDE [Concomitant]
     Route: 065
  9. CARVEDILOL [Concomitant]
     Route: 065
  10. DIGOXIN [Concomitant]
     Route: 065
  11. FAMOTIDINE [Concomitant]
     Route: 065
  12. HYDRALAZINE HYDROCHLORIDE [Concomitant]
     Route: 065
  13. TORSEMIDE [Concomitant]
     Route: 065
  14. ISOSORBIDE MN [Concomitant]
     Route: 065
  15. SPIRONOLACTONE [Concomitant]
     Route: 065
  16. VITAMIN D [Concomitant]
  17. COUMADIN [Concomitant]
     Route: 065
  18. ALLOPURINOL [Concomitant]
     Dosage: 100 MG (2) AT BED TIME
     Route: 065
  19. LIPITOR [Concomitant]
     Route: 065
  20. DULCOLAX [Concomitant]
     Dosage: TWO AT BED TIME
     Route: 065
  21. DULCOLAX [Concomitant]
     Dosage: TWO AT BED TIME
     Route: 065

REACTIONS (5)
  - Cardiac valve disease [Unknown]
  - Abdominal tenderness [Unknown]
  - Gastric disorder [Unknown]
  - Injection site bruising [Unknown]
  - Skin mass [Unknown]
